FAERS Safety Report 6546104-9 (Version None)
Quarter: 2010Q1

REPORT INFORMATION
  Report Type: 
  Country: None (occurrence: None)
  Receive Date: 20100122
  Receipt Date: 20100113
  Transmission Date: 20100710
  Serious: Yes (Hospitalization)
  Sender: FDA-Public Use
  Company Number: DE-BIOGENIDEC-2010BI001763

PATIENT
  Age: 50 Year
  Sex: Female

DRUGS (7)
  1. TYSABRI [Suspect]
     Indication: MULTIPLE SCLEROSIS
     Route: 042
     Dates: start: 20070625
  2. ANTACIDS (NOS) [Concomitant]
  3. ANTIHYPERTENSIVE (NOS) [Concomitant]
  4. HYPNOTIC (NOS) [Concomitant]
  5. MULTI-VITAMINS [Concomitant]
  6. PREGABALINE [Concomitant]
  7. ALENDRONATE SODIUM [Concomitant]

REACTIONS (1)
  - MULTIPLE INJURIES [None]
